FAERS Safety Report 18862710 (Version 2)
Quarter: 2021Q1

REPORT INFORMATION
  Report Type: Spontaneous
  Country: US (occurrence: US)
  Receive Date: 20210208
  Receipt Date: 20210323
  Transmission Date: 20210420
  Serious: Yes (Other)
  Sender: FDA-Public Use
  Company Number: US-AMGEN-USASP2021019254

PATIENT
  Age: 41 Year
  Sex: Female

DRUGS (15)
  1. TROKENDI [Concomitant]
     Active Substance: TOPIRAMATE
  2. TRIAZOLAM. [Concomitant]
     Active Substance: TRIAZOLAM
  3. UBRELVY [Concomitant]
     Active Substance: UBROGEPANT
  4. AMOXICILLIN. [Concomitant]
     Active Substance: AMOXICILLIN
  5. DIAZEPAM. [Concomitant]
     Active Substance: DIAZEPAM
  6. OTEZLA [Suspect]
     Active Substance: APREMILAST
     Indication: BEHCET^S SYNDROME
     Dosage: 30 MILLIGRAM, BID
     Route: 048
     Dates: start: 20200722
  7. FAMOTIDINE. [Concomitant]
     Active Substance: FAMOTIDINE
  8. IBUPROFEN. [Concomitant]
     Active Substance: IBUPROFEN
  9. TEMAZEPAM. [Concomitant]
     Active Substance: TEMAZEPAM
  10. DULOXETINE [DULOXETINE HYDROCHLORIDE] [Concomitant]
     Active Substance: DULOXETINE HYDROCHLORIDE
  11. OXYCODONE/APAP [Concomitant]
     Active Substance: ACETAMINOPHEN\OXYCODONE HYDROCHLORIDE
  12. METHOCARBAMOL. [Concomitant]
     Active Substance: METHOCARBAMOL
  13. BUPRENORPHIN [Concomitant]
     Active Substance: BUPRENORPHINE
  14. ONDANSETRON [Concomitant]
     Active Substance: ONDANSETRON
  15. SUMATRIPTAN. [Concomitant]
     Active Substance: SUMATRIPTAN

REACTIONS (4)
  - Nausea [Not Recovered/Not Resolved]
  - Behcet^s syndrome [Not Recovered/Not Resolved]
  - Vomiting [Not Recovered/Not Resolved]
  - Pain [Not Recovered/Not Resolved]
